FAERS Safety Report 21759377 (Version 3)
Quarter: 2023Q4

REPORT INFORMATION
  Report Type: Report from Study
  Country: US (occurrence: None)
  Receive Date: 20221221
  Receipt Date: 20231107
  Transmission Date: 20240109
  Serious: Yes (Hospitalization, Other)
  Sender: FDA-Public Use
  Company Number: US-ROCHE-2504690

PATIENT
  Age: 70 Year
  Sex: Female
  Weight: 54.4 kg

DRUGS (4)
  1. ATEZOLIZUMAB [Suspect]
     Active Substance: ATEZOLIZUMAB
     Indication: Biliary neoplasm
     Dosage: PATIENT RECEIVE ATEZOLIZUMAB IV OVER 30-60 MINUTES ON DAYS 1 AND 15?ON 28/MAY/2019, SHE RECEIVED THE
     Route: 042
     Dates: start: 20180807, end: 20190611
  2. ATEZOLIZUMAB [Suspect]
     Active Substance: ATEZOLIZUMAB
     Indication: Cholangiocarcinoma
  3. COBIMETINIB [Suspect]
     Active Substance: COBIMETINIB
     Indication: Biliary neoplasm
     Route: 048
  4. COBIMETINIB [Suspect]
     Active Substance: COBIMETINIB
     Indication: Cholangiocarcinoma

REACTIONS (7)
  - Sepsis [Recovered/Resolved]
  - Headache [Unknown]
  - Blood alkaline phosphatase increased [Unknown]
  - Anaemia [Unknown]
  - Biliary obstruction [Unknown]
  - Hyperthyroidism [Unknown]
  - Bacteraemia [Recovered/Resolved with Sequelae]

NARRATIVE: CASE EVENT DATE: 20190625
